FAERS Safety Report 4551091-9 (Version None)
Quarter: 2005Q1

REPORT INFORMATION
  Report Type: 
  Country: None (occurrence: None)
  Receive Date: 20050113
  Receipt Date: 20050104
  Transmission Date: 20050727
  Serious: Yes (Other)
  Sender: FDA-Public Use
  Company Number: PHFR2005GB00464

PATIENT
  Age: 58 Year
  Sex: Male
  Weight: 87 kg

DRUGS (2)
  1. DICLOFENAC [Suspect]
     Indication: BACK PAIN
     Route: 048
     Dates: start: 20041212, end: 20041212
  2. SOLPADEINE /UNK/ [Concomitant]
     Indication: BACK PAIN
     Route: 048

REACTIONS (5)
  - EYE SWELLING [None]
  - OEDEMA PERIPHERAL [None]
  - RASH GENERALISED [None]
  - SWELLING FACE [None]
  - SWOLLEN TONGUE [None]
